FAERS Safety Report 11274434 (Version 1)
Quarter: 2015Q3

REPORT INFORMATION
  Report Type: Spontaneous
  Country: US (occurrence: US)
  Receive Date: 20150715
  Receipt Date: 20150715
  Transmission Date: 20151125
  Serious: Yes (Congenital Anomaly)
  Sender: FDA-Public Use
  Company Number: US-ABBVIE-15P-163-1425943-00

PATIENT

DRUGS (1)
  1. DEPAKOTE [Suspect]
     Active Substance: DIVALPROEX SODIUM
     Indication: MATERNAL EXPOSURE TIMING UNSPECIFIED
     Route: 064

REACTIONS (17)
  - Ventricular septal defect [Unknown]
  - Learning disorder [Unknown]
  - Congenital anomaly [Unknown]
  - Cognitive disorder [Unknown]
  - Pain [Unknown]
  - Foetal exposure during pregnancy [Unknown]
  - Anhedonia [Unknown]
  - Dyslexia [Unknown]
  - Attention deficit/hyperactivity disorder [Unknown]
  - Abnormal behaviour [Unknown]
  - Coarctation of the aorta [Unknown]
  - Motor developmental delay [Unknown]
  - Language disorder [Unknown]
  - Emotional distress [Unknown]
  - Aorta hypoplasia [Unknown]
  - Injury [Unknown]
  - Economic problem [Unknown]
